FAERS Safety Report 14762858 (Version 1)
Quarter: 2018Q2

REPORT INFORMATION
  Report Type: Spontaneous
  Country: IN (occurrence: IN)
  Receive Date: 20180416
  Receipt Date: 20180416
  Transmission Date: 20180711
  Serious: Yes (Other)
  Sender: FDA-Public Use
  Company Number: IN-TORRENT-00001678

PATIENT

DRUGS (2)
  1. OLANZAPINE. [Suspect]
     Active Substance: OLANZAPINE
     Indication: PERINATAL DEPRESSION
     Dosage: IN THE NIGHT
     Route: 063
  2. SERTRALINE [Suspect]
     Active Substance: SERTRALINE HYDROCHLORIDE
     Indication: PERINATAL DEPRESSION
     Dosage: IN THE MORNING, HIKED TO 75 MG PER DAY (25 MG IN THE MORNING AND 50 MG IN THE NIGHT)
     Route: 063

REACTIONS (2)
  - Exposure via breast milk [Unknown]
  - Diarrhoea [Recovered/Resolved]
